FAERS Safety Report 5336703-4 (Version None)
Quarter: 2007Q2

REPORT INFORMATION
  Report Type: 
  Country: None (occurrence: None)
  Receive Date: 20070524
  Receipt Date: 20070524
  Transmission Date: 20071010
  Serious: Yes (Hospitalization)
  Sender: FDA-Public Use
  Company Number: None

PATIENT
  Age: 56 Year
  Sex: Male
  Weight: 81.6475 kg

DRUGS (1)
  1. PREGABALIN [Suspect]
     Indication: NEUROPATHY PERIPHERAL
     Dosage: 300 MG PO BID STARTED ~ 2 MOS PTA
     Route: 048

REACTIONS (5)
  - COORDINATION ABNORMAL [None]
  - DYSARTHRIA [None]
  - FALL [None]
  - INCORRECT DOSE ADMINISTERED [None]
  - MENTAL STATUS CHANGES [None]
